FAERS Safety Report 17444169 (Version 1)
Quarter: 2020Q1

REPORT INFORMATION
  Report Type: Spontaneous
  Country: US (occurrence: US)
  Receive Date: 20200207
  Receipt Date: 20200207
  Transmission Date: 20200409
  Serious: Yes (Hospitalization)
  Sender: FDA-Public Use
  Company Number: None

PATIENT
  Age: 56 Year
  Sex: Female

DRUGS (2)
  1. GLATIRAMER 40MG [Suspect]
     Active Substance: GLATIRAMER
     Indication: MULTIPLE SCLEROSIS
     Route: 058
     Dates: start: 20190802
  2. DALFAMPRIDINE. [Concomitant]
     Active Substance: DALFAMPRIDINE

REACTIONS (2)
  - Cellulitis [None]
  - Dizziness [None]

NARRATIVE: CASE EVENT DATE: 20200201
